FAERS Safety Report 18603999 (Version 1)
Quarter: 2020Q4

REPORT INFORMATION
  Report Type: Report from Study
  Country: None (occurrence: US)
  Receive Date: 20201211
  Receipt Date: 20201211
  Transmission Date: 20210114
  Serious: Yes (Hospitalization, Other)
  Sender: FDA-Public Use
  Company Number: US-BIOVITRUM-2020US4747

PATIENT
  Age: 47 Year
  Sex: Female

DRUGS (2)
  1. KINERET [Suspect]
     Active Substance: ANAKINRA
     Route: 058
     Dates: start: 20200819
  2. KINERET [Suspect]
     Active Substance: ANAKINRA
     Indication: IDIOPATHIC URTICARIA
     Route: 058
     Dates: start: 20200805

REACTIONS (10)
  - Product dose omission issue [Unknown]
  - Abdominal wall cyst [Unknown]
  - Procedural complication [Unknown]
  - Dehydration [Unknown]
  - Abdominal mass [Unknown]
  - Seroma [Unknown]
  - Cellulitis [Unknown]
  - Infection [Unknown]
  - Injection site pain [Unknown]
  - Off label use [Not Recovered/Not Resolved]

NARRATIVE: CASE EVENT DATE: 20200819
